FAERS Safety Report 24006437 (Version 2)
Quarter: 2024Q3

REPORT INFORMATION
  Report Type: Spontaneous
  Country: FR (occurrence: FR)
  Receive Date: 20240624
  Receipt Date: 20240717
  Transmission Date: 20241017
  Serious: Yes (Hospitalization, Other)
  Sender: MERCK
  Company Number: FR-GILEAD-2024-0676405

PATIENT
  Sex: Female
  Weight: 82.7 kg

DRUGS (9)
  1. PEMBROLIZUMAB [Suspect]
     Active Substance: PEMBROLIZUMAB
     Indication: Non-small cell lung cancer metastatic
     Dosage: 200 MG
     Route: 042
     Dates: start: 20240502, end: 20240502
  2. PEMBROLIZUMAB [Suspect]
     Active Substance: PEMBROLIZUMAB
     Dosage: 200 MG
     Route: 042
     Dates: start: 20240524, end: 20240524
  3. PACLITAXEL [Suspect]
     Active Substance: PACLITAXEL
     Indication: Non-small cell lung cancer metastatic
     Dosage: 378 MG
     Route: 042
     Dates: start: 20240502, end: 20240502
  4. PACLITAXEL [Suspect]
     Active Substance: PACLITAXEL
     Dosage: 372 MG
     Route: 042
     Dates: start: 20240524, end: 20240524
  5. CARBOPLATIN [Suspect]
     Active Substance: CARBOPLATIN
     Indication: Non-small cell lung cancer metastatic
     Dosage: 600 MG
     Route: 042
     Dates: start: 20240502, end: 20240502
  6. CARBOPLATIN [Suspect]
     Active Substance: CARBOPLATIN
     Dosage: 660 MG
     Route: 042
     Dates: start: 20240524, end: 20240524
  7. FUNGIZONE [Concomitant]
     Active Substance: AMPHOTERICIN B
     Indication: Mouth ulceration
     Dosage: UNK
     Route: 048
     Dates: start: 20240507
  8. PRIMPERAN [Concomitant]
     Active Substance: METOCLOPRAMIDE HYDROCHLORIDE
     Indication: Nausea
     Dosage: UNK
     Route: 048
     Dates: start: 20240507
  9. IMODIUM [Concomitant]
     Active Substance: LOPERAMIDE HYDROCHLORIDE
     Indication: Diarrhoea
     Dosage: UNK
     Route: 048
     Dates: start: 20240507

REACTIONS (1)
  - Febrile bone marrow aplasia [Recovered/Resolved]

NARRATIVE: CASE EVENT DATE: 20240604
